FAERS Safety Report 4371305-8 (Version None)
Quarter: 2004Q2

REPORT INFORMATION
  Report Type: 
  Country: None (occurrence: None)
  Receive Date: 20040603
  Receipt Date: 20040519
  Transmission Date: 20050107
  Serious: Yes (Hospitalization, Disabling)
  Sender: FDA-Public Use
  Company Number: US-JNJFOC-20040505096

PATIENT
  Age: 59 Year
  Sex: Female

DRUGS (16)
  1. INFLIXIMAB, RECOMBINANT- BLINDED (INFLIXIMAB, RECOMBINANT) LYOPHILIZED [Suspect]
     Indication: PSORIASIS
     Dosage: INTRAVENOUS
     Route: 042
     Dates: start: 20031222
  2. INFLIXIMAB, RECOMBINANT- BLINDED (INFLIXIMAB, RECOMBINANT) LYOPHILIZED [Suspect]
     Indication: PSORIASIS
     Dosage: INTRAVENOUS
     Route: 042
     Dates: start: 20040105
  3. INFLIXIMAB, RECOMBINANT- BLINDED (INFLIXIMAB, RECOMBINANT) LYOPHILIZED [Suspect]
     Indication: PSORIASIS
     Dosage: INTRAVENOUS
     Route: 042
     Dates: start: 20040202
  4. INFLIXIMAB, RECOMBINANT- BLINDED (INFLIXIMAB, RECOMBINANT) LYOPHILIZED [Suspect]
     Indication: PSORIASIS
     Dosage: INTRAVENOUS
     Route: 042
     Dates: start: 20040330
  5. INFLIXIMAB, RECOMBINANT- BLINDED (INFLIXIMAB, RECOMBINANT) LYOPHILIZED [Suspect]
     Indication: PSORIASIS
     Dosage: INTRAVENOUS
     Route: 042
     Dates: start: 20040413
  6. INFLIXIMAB, RECOMBINANT- BLINDED (INFLIXIMAB, RECOMBINANT) LYOPHILIZED [Suspect]
     Indication: PSORIASIS
     Dosage: INTRAVENOUS
     Route: 042
     Dates: start: 20040426
  7. PLACEBO (PLACEBO) LYOPHILIZED POWDER [Suspect]
     Indication: PSORIASIS
     Dosage: INTRAVENOUS
     Route: 042
     Dates: start: 20031222
  8. PLACEBO (PLACEBO) LYOPHILIZED POWDER [Suspect]
     Indication: PSORIASIS
     Dosage: INTRAVENOUS
     Route: 042
     Dates: start: 20040105
  9. PLACEBO (PLACEBO) LYOPHILIZED POWDER [Suspect]
     Indication: PSORIASIS
     Dosage: INTRAVENOUS
     Route: 042
     Dates: start: 20040202
  10. PLACEBO (PLACEBO) LYOPHILIZED POWDER [Suspect]
     Indication: PSORIASIS
     Dosage: INTRAVENOUS
     Route: 042
     Dates: start: 20040330
  11. PLACEBO (PLACEBO) LYOPHILIZED POWDER [Suspect]
     Indication: PSORIASIS
     Dosage: INTRAVENOUS
     Route: 042
     Dates: start: 20040413
  12. PLACEBO (PLACEBO) LYOPHILIZED POWDER [Suspect]
     Indication: PSORIASIS
     Dosage: INTRAVENOUS
     Route: 042
     Dates: start: 20040426
  13. BENICAR [Concomitant]
  14. TRIAMTERENE (TRIAMTERENE) [Concomitant]
  15. CLARITIN [Concomitant]
  16. ORTHO-EST (ESTROPIPATE) TABLETS [Concomitant]

REACTIONS (4)
  - BREAST CANCER [None]
  - INCISION SITE COMPLICATION [None]
  - LUNG INFECTION [None]
  - STAPHYLOCOCCAL INFECTION [None]
